FAERS Safety Report 22130635 (Version 1)
Quarter: 2023Q1

REPORT INFORMATION
  Report Type: Spontaneous
  Country: US (occurrence: None)
  Receive Date: 20230322
  Receipt Date: 20230322
  Transmission Date: 20230417
  Serious: Yes (Disabling)
  Sender: FDA-Public Use
  Company Number: None

PATIENT
  Age: 44 Year
  Sex: Female
  Weight: 125.65 kg

DRUGS (7)
  1. OZEMPIC [Suspect]
     Active Substance: SEMAGLUTIDE
     Indication: Type 2 diabetes mellitus
     Dosage: FREQUENCY : DAILY;?
     Route: 058
  2. OZEMPIC [Concomitant]
     Active Substance: SEMAGLUTIDE
  3. METFORMIN [Concomitant]
     Active Substance: METFORMIN HYDROCHLORIDE
  4. OMEPRAZOLE [Concomitant]
     Active Substance: OMEPRAZOLE
  5. ENALAPRIL [Concomitant]
     Active Substance: ENALAPRIL
  6. ROSUVASTATIN [Concomitant]
     Active Substance: ROSUVASTATIN
  7. SERTRALINE [Concomitant]
     Active Substance: SERTRALINE HYDROCHLORIDE

REACTIONS (17)
  - Injection site pain [None]
  - Injection site swelling [None]
  - Product odour abnormal [None]
  - Headache [None]
  - Retching [None]
  - Diarrhoea [None]
  - Feeling abnormal [None]
  - Myalgia [None]
  - Arthralgia [None]
  - Abdominal pain upper [None]
  - Fatigue [None]
  - Dizziness [None]
  - Dizziness [None]
  - Dizziness [None]
  - Vomiting [None]
  - Injection site pain [None]
  - Nausea [None]

NARRATIVE: CASE EVENT DATE: 20230319
